FAERS Safety Report 9596265 (Version 1)
Quarter: 2013Q4

REPORT INFORMATION
  Report Type: Spontaneous
  Country: ZA (occurrence: ZA)
  Receive Date: 20131004
  Receipt Date: 20131004
  Transmission Date: 20140711
  Serious: Yes (Death, Hospitalization, Disabling, Other)
  Sender: FDA-Public Use
  Company Number: ZA-B.I. PHARMACEUTICALS,INC./RIDGEFIELD-2013-BI-30807GD

PATIENT
  Age: 36 Year
  Sex: Female

DRUGS (3)
  1. VIRAMUNE [Suspect]
     Indication: HIV INFECTION
     Dates: start: 200708
  2. ZIDOVUDINE [Concomitant]
     Indication: HIV INFECTION
     Dates: start: 200504
  3. LAMIVUDINE [Concomitant]
     Indication: HIV INFECTION
     Dates: start: 200504

REACTIONS (21)
  - Septic shock [Fatal]
  - Toxic epidermal necrolysis [Unknown]
  - Corneal perforation [Unknown]
  - Cellulitis orbital [Unknown]
  - Eye injury [Unknown]
  - Sepsis [Unknown]
  - Enterobacter infection [Unknown]
  - Acinetobacter infection [Unknown]
  - Klebsiella infection [Unknown]
  - Staphylococcal bacteraemia [Unknown]
  - Pseudomonas infection [Unknown]
  - Proteus infection [Unknown]
  - Stenotrophomonas infection [Unknown]
  - Sphingomonas paucimobilis infection [Unknown]
  - Deep vein thrombosis [Unknown]
  - Hypomagnesaemia [Unknown]
  - Hypercalcaemia [Unknown]
  - Hypoalbuminaemia [Unknown]
  - Skin haemorrhage [Unknown]
  - Anaemia [Unknown]
  - Tuberculosis [Unknown]
